FAERS Safety Report 4753995-0 (Version None)
Quarter: 2005Q3

REPORT INFORMATION
  Report Type: 
  Country: None (occurrence: None)
  Receive Date: 20050826
  Receipt Date: 20050311
  Transmission Date: 20060218
  Serious: Yes (Hospitalization, Disabling)
  Sender: FDA-Public Use
  Company Number: US-MERCK-0503USA02654

PATIENT
  Age: 58 Year
  Sex: Male
  Weight: 73 kg

DRUGS (7)
  1. FLOMAX (MORNIFLUMATE) [Concomitant]
     Route: 065
  2. VIOXX [Suspect]
     Indication: ARTHRITIS
     Route: 048
     Dates: start: 20010101, end: 20030306
  3. VIOXX [Suspect]
     Route: 048
     Dates: start: 20010101, end: 20030306
  4. GLUCOVANCE [Concomitant]
     Route: 048
  5. ZANTAC [Concomitant]
     Route: 065
  6. MICRONASE [Concomitant]
     Route: 065
  7. GLUCOPHAGE [Concomitant]
     Route: 065

REACTIONS (24)
  - ACTIVITIES OF DAILY LIVING IMPAIRED [None]
  - ANXIETY [None]
  - BLOOD GLUCOSE INCREASED [None]
  - BLOOD PRESSURE INADEQUATELY CONTROLLED [None]
  - CLOSTRIDIUM COLITIS [None]
  - DEPRESSION [None]
  - DYSARTHRIA [None]
  - DYSPHAGIA [None]
  - ENTEROCOCCAL INFECTION [None]
  - HAEMORRHAGIC STROKE [None]
  - HYPERHIDROSIS [None]
  - HYPOTENSION [None]
  - ILLUSION [None]
  - JOINT DISLOCATION [None]
  - LIMB INJURY [None]
  - MONOPLEGIA [None]
  - NEUROGENIC BLADDER [None]
  - NOCTURIA [None]
  - ORTHOSTATIC HYPOTENSION [None]
  - SENSORY LOSS [None]
  - SINUS BRADYCARDIA [None]
  - SYNCOPE VASOVAGAL [None]
  - UNRESPONSIVE TO PAIN STIMULI [None]
  - URINARY INCONTINENCE [None]
